FAERS Safety Report 5076260-3 (Version None)
Quarter: 2006Q3

REPORT INFORMATION
  Report Type: 
  Country: None (occurrence: None)
  Receive Date: 20060807
  Receipt Date: 20060725
  Transmission Date: 20061208
  Serious: Yes (Hospitalization, Other)
  Sender: FDA-Public Use
  Company Number: 2006092827

PATIENT
  Age: 40 Year
  Sex: Male

DRUGS (1)
  1. AZULFIDINE [Suspect]
     Indication: PSORIATIC ARTHROPATHY
     Dosage: ORAL
     Route: 048
     Dates: start: 20060601, end: 20060722

REACTIONS (10)
  - ALANINE AMINOTRANSFERASE INCREASED [None]
  - ASPARTATE AMINOTRANSFERASE INCREASED [None]
  - DRUG HYPERSENSITIVITY [None]
  - ERYTHEMA [None]
  - LIVER FUNCTION TEST ABNORMAL [None]
  - LYMPHADENOPATHY [None]
  - PYREXIA [None]
  - RASH GENERALISED [None]
  - RASH PRURITIC [None]
  - VIRAL INFECTION [None]
